FAERS Safety Report 4677562-2 (Version None)
Quarter: 2005Q2

REPORT INFORMATION
  Report Type: 
  Country: None (occurrence: None)
  Receive Date: 20050526
  Receipt Date: 20050526
  Transmission Date: 20051028
  Serious: Yes (Hospitalization)
  Sender: FDA-Public Use
  Company Number: None

PATIENT
  Age: 63 Year
  Sex: Male
  Weight: 93.8946 kg

DRUGS (10)
  1. WARFARIN SODIUM [Suspect]
     Indication: ATRIAL FLUTTER
     Dosage: 5 MG DAILY EXCEPT 2.5
  2. ASPIRIN [Suspect]
     Indication: ATRIAL FLUTTER
     Dosage: 325 MG DAILY
  3. COMBIVENT [Concomitant]
  4. TYLENOL W/ CODEINE NO. 3 [Concomitant]
  5. DIGOXIN [Concomitant]
  6. DILTIAZEM [Concomitant]
  7. FLUNISOLIDE [Concomitant]
  8. FOSINOPRIL [Concomitant]
  9. LORATADINE [Concomitant]
  10. RANITIDINE [Concomitant]

REACTIONS (2)
  - INTERNATIONAL NORMALISED RATIO INCREASED [None]
  - RECTAL HAEMORRHAGE [None]
